FAERS Safety Report 25114436 (Version 1)
Quarter: 2025Q1

REPORT INFORMATION
  Report Type: Spontaneous
  Country: PT (occurrence: PT)
  Receive Date: 20250324
  Receipt Date: 20250324
  Transmission Date: 20250408
  Serious: Yes (Other)
  Sender: PFIZER
  Company Number: PT-PFIZER INC-202500061925

PATIENT
  Age: 49 Year
  Sex: Female

DRUGS (1)
  1. TAFAMIDIS [Suspect]
     Active Substance: TAFAMIDIS
     Indication: Familial amyloidosis

REACTIONS (4)
  - Familial amyloidosis [Unknown]
  - Condition aggravated [Unknown]
  - Dry eye [Unknown]
  - Visual acuity reduced [Unknown]
